FAERS Safety Report 7823052-5 (Version None)
Quarter: 2011Q4

REPORT INFORMATION
  Report Type: 
  Country: None (occurrence: None)
  Receive Date: 20111018
  Receipt Date: 20101123
  Transmission Date: 20120403
  Serious: No
  Sender: FDA-Public Use
  Company Number: US-ASTRAZENECA-2010SE55762

PATIENT
  Sex: Male

DRUGS (2)
  1. SYMBICORT [Suspect]
     Indication: COUGH
     Dosage: 320 MCGS DAILY
     Route: 055
     Dates: start: 20101122
  2. SYMBICORT [Suspect]
     Indication: RHINORRHOEA
     Dosage: 320 MCGS DAILY
     Route: 055
     Dates: start: 20101122

REACTIONS (3)
  - COUGH [None]
  - DRUG INEFFECTIVE [None]
  - RHINORRHOEA [None]
